FAERS Safety Report 10272758 (Version 1)
Quarter: 2014Q2

REPORT INFORMATION
  Report Type: Spontaneous
  Country: US (occurrence: None)
  Receive Date: 20140627
  Receipt Date: 20140627
  Transmission Date: 20141212
  Serious: Yes (Hospitalization)
  Sender: FDA-Public Use
  Company Number: None

PATIENT
  Age: 76 Year
  Sex: Female
  Weight: 84.4 kg

DRUGS (7)
  1. PRADAXA [Suspect]
     Indication: ATRIAL FIBRILLATION
     Dosage: CHRONIC, 150MG, BID, ORAL
     Route: 048
  2. SEROQUEL [Concomitant]
  3. LITHIUM [Concomitant]
  4. SYNTHROID [Concomitant]
  5. METFORMIN [Suspect]
  6. GEMFIBROZIL [Concomitant]
  7. METOPROLOL [Concomitant]

REACTIONS (1)
  - Haemorrhage intracranial [None]
